FAERS Safety Report 21247324 (Version 3)
Quarter: 2022Q3

REPORT INFORMATION
  Report Type: Spontaneous
  Country: CN (occurrence: CN)
  Receive Date: 20220824
  Receipt Date: 20220928
  Transmission Date: 20221026
  Serious: Yes (Other)
  Sender: FDA-Public Use
  Company Number: CN-NOVARTISPH-NVSC2022CN187527

PATIENT
  Age: 54 Year
  Sex: Female

DRUGS (2)
  1. AZOPT [Suspect]
     Active Substance: BRINZOLAMIDE
     Indication: Glaucoma
     Dosage: UNK, 5ML: 50MG (1%), LEFT EYE ONCE IN THE EVENING OF THE FIRST DAY AND ONCE IN THE MORNING OF THE NE
     Route: 065
     Dates: start: 202110
  2. AZOPT [Suspect]
     Active Substance: BRINZOLAMIDE
     Indication: Ocular hypertension

REACTIONS (6)
  - Blindness unilateral [Not Recovered/Not Resolved]
  - Angina pectoris [Recovered/Resolved]
  - Eye swelling [Recovering/Resolving]
  - Suspected counterfeit product [Unknown]
  - Eye pain [Recovering/Resolving]
  - Ocular hyperaemia [Recovering/Resolving]

NARRATIVE: CASE EVENT DATE: 20211001
